FAERS Safety Report 22006738 (Version 1)
Quarter: 2023Q1

REPORT INFORMATION
  Report Type: Other
  Country: None (occurrence: US)
  Receive Date: 20230217
  Receipt Date: 20230217
  Transmission Date: 20230417
  Serious: Yes (Hospitalization)
  Sender: FDA-Public Use
  Company Number: US-Spectra Medical Devices, LLC-2138093

PATIENT
  Age: 63 Year
  Sex: Female

DRUGS (1)
  1. SODIUM CHLORIDE [Suspect]
     Active Substance: SODIUM CHLORIDE
     Indication: Bronchoalveolar lavage
     Route: 065

REACTIONS (1)
  - Pleural effusion [Recovered/Resolved]
